FAERS Safety Report 6103198-2 (Version None)
Quarter: 2009Q1

REPORT INFORMATION
  Report Type: 
  Country: None (occurrence: None)
  Receive Date: 20090302
  Receipt Date: 20090224
  Transmission Date: 20090719
  Serious: Yes (Other)
  Sender: FDA-Public Use
  Company Number: A0768413A

PATIENT
  Age: 70 Year
  Sex: Male

DRUGS (2)
  1. SODIUM FLUORIDE + POTASSIUM NITRATE TOOTHPASTE (SODIUM FLUORIDE + POTA [Suspect]
     Indication: DENTAL CLEANING
     Dosage: DENTAL
     Route: 004
     Dates: start: 20090211
  2. SODIUM FLUORIDE TOOTHPASTE (SOCIUM FLUORIDE) [Suspect]
     Indication: DENTAL CLEANING
     Dosage: DENTAL
     Route: 004
     Dates: start: 20090224

REACTIONS (7)
  - ABDOMINAL PAIN UPPER [None]
  - ANAPHYLACTIC REACTION [None]
  - DYSPNOEA [None]
  - HEADACHE [None]
  - ILL-DEFINED DISORDER [None]
  - NASAL CONGESTION [None]
  - TREMOR [None]
